FAERS Safety Report 5512524-4 (Version None)
Quarter: 2007Q4

REPORT INFORMATION
  Report Type: 
  Country: None (occurrence: None)
  Receive Date: 20071112
  Receipt Date: 20070613
  Transmission Date: 20080405
  Serious: No
  Sender: FDA-Public Use
  Company Number: A0655896A

PATIENT
  Age: 67 Year
  Sex: Female

DRUGS (6)
  1. AVANDAMET [Suspect]
     Dosage: 1TAB PER DAY
     Route: 048
     Dates: start: 20060601, end: 20070606
  2. GLIMEPIRIDE [Concomitant]
  3. FAMOTIDINE [Concomitant]
  4. DIOVAN [Concomitant]
  5. VYTORIN [Concomitant]
  6. TOPROL-XL [Concomitant]

REACTIONS (2)
  - JOINT SWELLING [None]
  - OEDEMA PERIPHERAL [None]
